FAERS Safety Report 5973682-0 (Version None)
Quarter: 2008Q4

REPORT INFORMATION
  Report Type: 
  Country: None (occurrence: None)
  Receive Date: 20081201
  Receipt Date: 20081125
  Transmission Date: 20090506
  Serious: Yes (Death)
  Sender: FDA-Public Use
  Company Number: US-ROXANE LABORATORIES, INC.-2008-RO-00289RO

PATIENT
  Age: 4 Month
  Sex: Female

DRUGS (4)
  1. PSEUDOEPHEDRINE HCL [Suspect]
  2. DEXTROMETHORPHAN [Suspect]
  3. CARBINOXAMINE [Suspect]
  4. ATROPINE [Suspect]

REACTIONS (5)
  - ASPHYXIA [None]
  - INCORRECT DOSE ADMINISTERED [None]
  - MULTIPLE INJURIES [None]
  - POISONING [None]
  - SUDDEN INFANT DEATH SYNDROME [None]
